FAERS Safety Report 9559467 (Version 1)
Quarter: 2013Q3

REPORT INFORMATION
  Report Type: Spontaneous
  Country: US (occurrence: US)
  Receive Date: 20130927
  Receipt Date: 20130927
  Transmission Date: 20140515
  Serious: No
  Sender: FDA-Public Use
  Company Number: US-B.I. PHARMACEUTICALS,INC./RIDGEFIELD-2013-BI-29277BP

PATIENT
  Sex: Male
  Weight: 91 kg

DRUGS (8)
  1. SPIRIVA [Suspect]
     Indication: EMPHYSEMA
     Dosage: 18 MCG
     Route: 055
     Dates: start: 2004
  2. COMBIVENT [Suspect]
     Indication: EMPHYSEMA
     Dosage: STRENGTH: 20 MCG / 100 MCG; DAILY DOSE: 160MCG/ 800 MCG
     Route: 055
     Dates: start: 2004
  3. DILTIAZEM CD [Concomitant]
     Indication: HYPERTENSION
     Dosage: 120 MG
     Route: 048
     Dates: start: 2009
  4. ONDANSTERON [Concomitant]
     Indication: MENIERE^S DISEASE
     Dosage: 4 MG
     Route: 048
     Dates: start: 201304
  5. BETA-SERC [Concomitant]
     Indication: MENIERE^S DISEASE
     Dosage: 48 MG
     Route: 048
     Dates: start: 1988
  6. MIRTRAZIPINE [Concomitant]
     Indication: SLEEP DISORDER
     Dosage: 15 MG
     Route: 048
     Dates: start: 2011
  7. DONEPEZIL [Concomitant]
     Indication: MEMORY IMPAIRMENT
     Dosage: 5 MG
     Route: 048
     Dates: start: 2012
  8. LOSARTAN [Concomitant]
     Indication: HYPERTENSION
     Dosage: 100 MG
     Route: 048
     Dates: start: 2009

REACTIONS (1)
  - Neuropathy peripheral [Not Recovered/Not Resolved]
